FAERS Safety Report 9596472 (Version 1)
Quarter: 2013Q4

REPORT INFORMATION
  Report Type: Spontaneous
  Country: US (occurrence: US)
  Receive Date: 20131004
  Receipt Date: 20131004
  Transmission Date: 20140711
  Serious: No
  Sender: FDA-Public Use
  Company Number: US-PFIZER INC-2013282681

PATIENT
  Sex: Female

DRUGS (5)
  1. NEURONTIN [Suspect]
     Indication: NEURALGIA
     Dosage: 300 MG, DAILY
     Route: 048
     Dates: start: 201301, end: 201309
  2. NEURONTIN [Suspect]
     Indication: NERVE INJURY
     Dosage: 300 MG, 2X/DAY
     Dates: start: 2013, end: 2013
  3. NEURONTIN [Suspect]
     Dosage: 100 MG, DAILY
     Dates: start: 201309
  4. BONIVA [Suspect]
     Dosage: UNK
  5. TRAMADOL [Concomitant]
     Dosage: 50 MG, AS NEEDED

REACTIONS (5)
  - Off label use [Unknown]
  - Back pain [Unknown]
  - Nausea [Unknown]
  - Malaise [Unknown]
  - Drug ineffective for unapproved indication [Unknown]
